FAERS Safety Report 9053653 (Version 1)
Quarter: 2013Q1

REPORT INFORMATION
  Report Type: Spontaneous
  Country: US (occurrence: None)
  Receive Date: 20130117
  Receipt Date: 20130117
  Transmission Date: 20140127
  Serious: Yes (Other)
  Sender: FDA-Public Use
  Company Number: TPA2012A09449

PATIENT
  Age: 62 Year
  Sex: Female
  Weight: 92.99 kg

DRUGS (3)
  1. ACTOS (PIOGLITAZONE HYDROCHLORIDE) [Suspect]
     Indication: TYPE 2 DIABETES MELLITUS
     Dates: start: 20080707, end: 20120216
  2. METFORMIN (METFORMIN) [Concomitant]
  3. LANTUS (INSULIN GLARGINE) [Concomitant]

REACTIONS (3)
  - Bladder cancer [None]
  - Cerebrovascular accident [None]
  - Sensation of heaviness [None]
